FAERS Safety Report 17393114 (Version 1)
Quarter: 2020Q1

REPORT INFORMATION
  Report Type: Spontaneous
  Country: CZ (occurrence: CZ)
  Receive Date: 20200207
  Receipt Date: 20200207
  Transmission Date: 20200409
  Serious: Yes (Life-Threatening, Hospitalization, Disabling, Other)
  Sender: FDA-Public Use
  Company Number: CZ-GLAXOSMITHKLINE-CZ2020019533

PATIENT
  Age: 48 Year
  Sex: Female
  Weight: 50 kg

DRUGS (2)
  1. RELVAR ELLIPTA [Suspect]
     Active Substance: FLUTICASONE FUROATE\VILANTEROL TRIFENATATE
     Indication: ASTHMA
     Dosage: 184 ?G, QD ONE INHALATION IN THE MORNING IN DOSE 184/22
     Route: 055
     Dates: start: 20180101, end: 20200121
  2. VENTOLIN [Concomitant]
     Active Substance: ALBUTEROL SULFATE
     Indication: ASTHMA
     Dosage: 100 ?G, PRN ACCORDING TO NEED
     Route: 055
     Dates: start: 1990, end: 2020

REACTIONS (1)
  - Cardiac arrest [Recovered/Resolved with Sequelae]

NARRATIVE: CASE EVENT DATE: 2019
